FAERS Safety Report 23487528 (Version 4)
Quarter: 2025Q1

REPORT INFORMATION
  Report Type: Spontaneous
  Country: CA (occurrence: CA)
  Receive Date: 20240206
  Receipt Date: 20250224
  Transmission Date: 20250409
  Serious: Yes (Hospitalization, Other)
  Sender: MYLAN
  Company Number: CA-MYLANLABS-2024M1011164

PATIENT
  Age: 47 Year
  Sex: Female

DRUGS (502)
  1. GABAPENTIN [Interacting]
     Active Substance: GABAPENTIN
     Indication: Scoliosis
     Dosage: 600 MILLIGRAM, TID (3 EVERY 1 DAYS)
     Route: 048
  2. GABAPENTIN [Interacting]
     Active Substance: GABAPENTIN
     Indication: Pain
     Dosage: 600 MILLIGRAM, TID (3 EVERY 1 DAYS)
  3. GABAPENTIN [Interacting]
     Active Substance: GABAPENTIN
     Dosage: 600 MILLIGRAM, TID (3 EVERY 1 DAYS)
  4. GABAPENTIN [Interacting]
     Active Substance: GABAPENTIN
     Dosage: 600 MILLIGRAM, TID (3 EVERY 1 DAYS)
     Route: 048
  5. GABAPENTIN [Interacting]
     Active Substance: GABAPENTIN
     Dosage: 600 MILLIGRAM, QID (4 EVERY 1 DAYS)
  6. GABAPENTIN [Interacting]
     Active Substance: GABAPENTIN
     Dosage: 600 MILLIGRAM, QID (4 EVERY 1 DAYS)
     Route: 048
  7. GABAPENTIN [Interacting]
     Active Substance: GABAPENTIN
     Dosage: 600 MILLIGRAM, QID (4 EVERY 1 DAYS)
     Route: 048
  8. GABAPENTIN [Interacting]
     Active Substance: GABAPENTIN
     Dosage: 600 MILLIGRAM, QID (4 EVERY 1 DAYS)
  9. GABAPENTIN [Interacting]
     Active Substance: GABAPENTIN
     Dosage: 400 MILLIGRAM, QID (4 EVERY 1 DAYS)
  10. GABAPENTIN [Interacting]
     Active Substance: GABAPENTIN
     Dosage: 400 MILLIGRAM, QID (4 EVERY 1 DAYS)
     Route: 048
  11. GABAPENTIN [Interacting]
     Active Substance: GABAPENTIN
     Dosage: 400 MILLIGRAM, QID (4 EVERY 1 DAYS)
     Route: 048
  12. GABAPENTIN [Interacting]
     Active Substance: GABAPENTIN
     Dosage: 400 MILLIGRAM, QID (4 EVERY 1 DAYS)
  13. GABAPENTIN [Interacting]
     Active Substance: GABAPENTIN
     Dosage: 400 MILLIGRAM, QID (4 EVERY 1 DAYS)
  14. GABAPENTIN [Interacting]
     Active Substance: GABAPENTIN
     Dosage: 400 MILLIGRAM, QID (4 EVERY 1 DAYS)
     Route: 065
  15. GABAPENTIN [Interacting]
     Active Substance: GABAPENTIN
     Dosage: 400 MILLIGRAM, QID (4 EVERY 1 DAYS)
     Route: 065
  16. GABAPENTIN [Interacting]
     Active Substance: GABAPENTIN
     Dosage: 400 MILLIGRAM, QID (4 EVERY 1 DAYS)
  17. GABAPENTIN [Interacting]
     Active Substance: GABAPENTIN
     Route: 065
  18. GABAPENTIN [Interacting]
     Active Substance: GABAPENTIN
     Route: 065
  19. GABAPENTIN [Interacting]
     Active Substance: GABAPENTIN
  20. GABAPENTIN [Interacting]
     Active Substance: GABAPENTIN
  21. GABAPENTIN [Interacting]
     Active Substance: GABAPENTIN
     Dosage: 600 MILLIGRAM, TID (3 EVERY 1 DAYS)
     Route: 048
  22. GABAPENTIN [Interacting]
     Active Substance: GABAPENTIN
     Dosage: 600 MILLIGRAM, TID (3 EVERY 1 DAYS)
  23. GABAPENTIN [Interacting]
     Active Substance: GABAPENTIN
     Dosage: 600 MILLIGRAM, TID (3 EVERY 1 DAYS)
  24. GABAPENTIN [Interacting]
     Active Substance: GABAPENTIN
     Dosage: 600 MILLIGRAM, TID (3 EVERY 1 DAYS)
     Route: 048
  25. GABAPENTIN [Interacting]
     Active Substance: GABAPENTIN
  26. GABAPENTIN [Interacting]
     Active Substance: GABAPENTIN
  27. GABAPENTIN [Interacting]
     Active Substance: GABAPENTIN
     Route: 048
  28. GABAPENTIN [Interacting]
     Active Substance: GABAPENTIN
     Route: 048
  29. GABAPENTIN [Interacting]
     Active Substance: GABAPENTIN
  30. GABAPENTIN [Interacting]
     Active Substance: GABAPENTIN
     Route: 065
  31. GABAPENTIN [Interacting]
     Active Substance: GABAPENTIN
  32. GABAPENTIN [Interacting]
     Active Substance: GABAPENTIN
     Route: 065
  33. VALPROATE [Interacting]
     Active Substance: VALPROIC ACID
     Indication: Mania
     Route: 048
  34. VALPROATE [Interacting]
     Active Substance: VALPROIC ACID
     Indication: Affective disorder
  35. VALPROATE [Interacting]
     Active Substance: VALPROIC ACID
  36. VALPROATE [Interacting]
     Active Substance: VALPROIC ACID
     Route: 048
  37. VALPROATE [Interacting]
     Active Substance: VALPROIC ACID
     Dosage: 250 MILLIGRAM, QD (1 EVERY 1 DAYS)
  38. VALPROATE [Interacting]
     Active Substance: VALPROIC ACID
     Dosage: 250 MILLIGRAM, QD (1 EVERY 1 DAYS)
  39. VALPROATE [Interacting]
     Active Substance: VALPROIC ACID
     Dosage: 250 MILLIGRAM, QD (1 EVERY 1 DAYS)
     Route: 048
  40. VALPROATE [Interacting]
     Active Substance: VALPROIC ACID
     Dosage: 250 MILLIGRAM, QD (1 EVERY 1 DAYS)
     Route: 048
  41. VALPROATE [Interacting]
     Active Substance: VALPROIC ACID
     Dosage: 500 MILLIGRAM, QD (1 EVERY 1 DAYS)
     Route: 048
  42. VALPROATE [Interacting]
     Active Substance: VALPROIC ACID
     Dosage: 500 MILLIGRAM, QD (1 EVERY 1 DAYS)
  43. VALPROATE [Interacting]
     Active Substance: VALPROIC ACID
     Dosage: 500 MILLIGRAM, QD (1 EVERY 1 DAYS)
  44. VALPROATE [Interacting]
     Active Substance: VALPROIC ACID
     Dosage: 500 MILLIGRAM, QD (1 EVERY 1 DAYS)
     Route: 048
  45. VALPROATE [Interacting]
     Active Substance: VALPROIC ACID
  46. VALPROATE [Interacting]
     Active Substance: VALPROIC ACID
  47. VALPROATE [Interacting]
     Active Substance: VALPROIC ACID
     Route: 048
  48. VALPROATE [Interacting]
     Active Substance: VALPROIC ACID
     Route: 048
  49. VALPROATE [Interacting]
     Active Substance: VALPROIC ACID
  50. VALPROATE [Interacting]
     Active Substance: VALPROIC ACID
  51. VALPROATE [Interacting]
     Active Substance: VALPROIC ACID
     Route: 048
  52. VALPROATE [Interacting]
     Active Substance: VALPROIC ACID
     Route: 048
  53. VALPROATE [Interacting]
     Active Substance: VALPROIC ACID
     Dosage: 750 MILLIGRAM, QD
  54. VALPROATE [Interacting]
     Active Substance: VALPROIC ACID
     Dosage: 750 MILLIGRAM, QD
     Route: 048
  55. VALPROATE [Interacting]
     Active Substance: VALPROIC ACID
     Dosage: 750 MILLIGRAM, QD
  56. VALPROATE [Interacting]
     Active Substance: VALPROIC ACID
     Dosage: 750 MILLIGRAM, QD
     Route: 048
  57. DIVALPROEX SODIUM [Interacting]
     Active Substance: DIVALPROEX SODIUM
     Indication: Affective disorder
     Dosage: 250 MILLIGRAM, QD
  58. DIVALPROEX SODIUM [Interacting]
     Active Substance: DIVALPROEX SODIUM
     Indication: Mania
     Dosage: 250 MILLIGRAM, QD
  59. DIVALPROEX SODIUM [Interacting]
     Active Substance: DIVALPROEX SODIUM
     Dosage: 250 MILLIGRAM, QD
     Route: 048
  60. DIVALPROEX SODIUM [Interacting]
     Active Substance: DIVALPROEX SODIUM
     Dosage: 250 MILLIGRAM, QD
     Route: 048
  61. DIVALPROEX SODIUM [Interacting]
     Active Substance: DIVALPROEX SODIUM
     Dosage: 750 MILLIGRAM, QD
  62. DIVALPROEX SODIUM [Interacting]
     Active Substance: DIVALPROEX SODIUM
     Dosage: 750 MILLIGRAM, QD
  63. DIVALPROEX SODIUM [Interacting]
     Active Substance: DIVALPROEX SODIUM
     Dosage: 750 MILLIGRAM, QD
     Route: 048
  64. DIVALPROEX SODIUM [Interacting]
     Active Substance: DIVALPROEX SODIUM
     Dosage: 750 MILLIGRAM, QD
     Route: 048
  65. DIVALPROEX SODIUM [Interacting]
     Active Substance: DIVALPROEX SODIUM
     Dosage: 500 MILLIGRAM, QD (1 EVERY 1 DAYS)
  66. DIVALPROEX SODIUM [Interacting]
     Active Substance: DIVALPROEX SODIUM
     Dosage: 500 MILLIGRAM, QD (1 EVERY 1 DAYS)
     Route: 048
  67. DIVALPROEX SODIUM [Interacting]
     Active Substance: DIVALPROEX SODIUM
     Dosage: 500 MILLIGRAM, QD (1 EVERY 1 DAYS)
  68. DIVALPROEX SODIUM [Interacting]
     Active Substance: DIVALPROEX SODIUM
     Dosage: 500 MILLIGRAM, QD (1 EVERY 1 DAYS)
     Route: 048
  69. CYCLOBENZAPRINE [Interacting]
     Active Substance: CYCLOBENZAPRINE
     Indication: Scoliosis
  70. CYCLOBENZAPRINE [Interacting]
     Active Substance: CYCLOBENZAPRINE
     Indication: Pain
  71. CYCLOBENZAPRINE [Interacting]
     Active Substance: CYCLOBENZAPRINE
     Route: 048
  72. CYCLOBENZAPRINE [Interacting]
     Active Substance: CYCLOBENZAPRINE
     Route: 048
  73. CYCLOBENZAPRINE [Interacting]
     Active Substance: CYCLOBENZAPRINE
     Dosage: 10 MILLIGRAM, TID (3 EVERY 1 DAYS)
     Route: 048
  74. CYCLOBENZAPRINE [Interacting]
     Active Substance: CYCLOBENZAPRINE
     Dosage: 10 MILLIGRAM, TID (3 EVERY 1 DAYS)
     Route: 048
  75. CYCLOBENZAPRINE [Interacting]
     Active Substance: CYCLOBENZAPRINE
     Dosage: 10 MILLIGRAM, TID (3 EVERY 1 DAYS)
  76. CYCLOBENZAPRINE [Interacting]
     Active Substance: CYCLOBENZAPRINE
     Dosage: 10 MILLIGRAM, TID (3 EVERY 1 DAYS)
  77. CYCLOBENZAPRINE [Interacting]
     Active Substance: CYCLOBENZAPRINE
     Dosage: 10 MILLIGRAM, BID ( 2 EVERY 1 DAYS)
  78. CYCLOBENZAPRINE [Interacting]
     Active Substance: CYCLOBENZAPRINE
     Dosage: 10 MILLIGRAM, BID ( 2 EVERY 1 DAYS)
     Route: 048
  79. CYCLOBENZAPRINE [Interacting]
     Active Substance: CYCLOBENZAPRINE
     Dosage: 10 MILLIGRAM, BID ( 2 EVERY 1 DAYS)
     Route: 048
  80. CYCLOBENZAPRINE [Interacting]
     Active Substance: CYCLOBENZAPRINE
     Dosage: 10 MILLIGRAM, BID ( 2 EVERY 1 DAYS)
  81. CYCLOBENZAPRINE [Interacting]
     Active Substance: CYCLOBENZAPRINE
     Dosage: 50 MILLIGRAM, BID
     Route: 048
  82. CYCLOBENZAPRINE [Interacting]
     Active Substance: CYCLOBENZAPRINE
     Dosage: 50 MILLIGRAM, BID
  83. CYCLOBENZAPRINE [Interacting]
     Active Substance: CYCLOBENZAPRINE
     Dosage: 50 MILLIGRAM, BID
  84. CYCLOBENZAPRINE [Interacting]
     Active Substance: CYCLOBENZAPRINE
     Dosage: 50 MILLIGRAM, BID
     Route: 048
  85. CYCLOBENZAPRINE [Interacting]
     Active Substance: CYCLOBENZAPRINE
     Dosage: 10 MILLIGRAM, BID ( 2 EVERY 1 DAYS)
     Route: 048
  86. CYCLOBENZAPRINE [Interacting]
     Active Substance: CYCLOBENZAPRINE
     Dosage: 10 MILLIGRAM, BID ( 2 EVERY 1 DAYS)
     Route: 048
  87. CYCLOBENZAPRINE [Interacting]
     Active Substance: CYCLOBENZAPRINE
     Dosage: 10 MILLIGRAM, BID ( 2 EVERY 1 DAYS)
  88. CYCLOBENZAPRINE [Interacting]
     Active Substance: CYCLOBENZAPRINE
     Dosage: 10 MILLIGRAM, BID ( 2 EVERY 1 DAYS)
  89. CYCLOBENZAPRINE [Interacting]
     Active Substance: CYCLOBENZAPRINE
     Route: 048
  90. CYCLOBENZAPRINE [Interacting]
     Active Substance: CYCLOBENZAPRINE
     Route: 048
  91. CYCLOBENZAPRINE [Interacting]
     Active Substance: CYCLOBENZAPRINE
  92. CYCLOBENZAPRINE [Interacting]
     Active Substance: CYCLOBENZAPRINE
  93. CYCLOBENZAPRINE [Interacting]
     Active Substance: CYCLOBENZAPRINE
     Dosage: 10 MILLIGRAM, QD (1 EVERY 1 DAYS)
  94. CYCLOBENZAPRINE [Interacting]
     Active Substance: CYCLOBENZAPRINE
     Dosage: 10 MILLIGRAM, QD (1 EVERY 1 DAYS)
     Route: 048
  95. CYCLOBENZAPRINE [Interacting]
     Active Substance: CYCLOBENZAPRINE
     Dosage: 10 MILLIGRAM, QD (1 EVERY 1 DAYS)
     Route: 048
  96. CYCLOBENZAPRINE [Interacting]
     Active Substance: CYCLOBENZAPRINE
     Dosage: 10 MILLIGRAM, QD (1 EVERY 1 DAYS)
  97. CYCLOBENZAPRINE [Interacting]
     Active Substance: CYCLOBENZAPRINE
  98. CYCLOBENZAPRINE [Interacting]
     Active Substance: CYCLOBENZAPRINE
  99. CYCLOBENZAPRINE [Interacting]
     Active Substance: CYCLOBENZAPRINE
     Route: 048
  100. CYCLOBENZAPRINE [Interacting]
     Active Substance: CYCLOBENZAPRINE
     Route: 048
  101. DOXEPIN [Interacting]
     Active Substance: DOXEPIN
     Indication: Major depression
     Dosage: 50 MILLIGRAM, QD (1 EVERY 1 DAYS)
  102. DOXEPIN [Interacting]
     Active Substance: DOXEPIN
     Dosage: 50 MILLIGRAM, QD (1 EVERY 1 DAYS)
  103. DOXEPIN [Interacting]
     Active Substance: DOXEPIN
     Dosage: 50 MILLIGRAM, QD (1 EVERY 1 DAYS)
     Route: 048
  104. DOXEPIN [Interacting]
     Active Substance: DOXEPIN
     Dosage: 50 MILLIGRAM, QD (1 EVERY 1 DAYS)
     Route: 048
  105. DOXEPIN [Interacting]
     Active Substance: DOXEPIN
     Dosage: 100 MILLIGRAM, QD (1 EVERY 1 DAYS)
  106. DOXEPIN [Interacting]
     Active Substance: DOXEPIN
     Dosage: 100 MILLIGRAM, QD (1 EVERY 1 DAYS)
  107. DOXEPIN [Interacting]
     Active Substance: DOXEPIN
     Dosage: 100 MILLIGRAM, QD (1 EVERY 1 DAYS)
     Route: 048
  108. DOXEPIN [Interacting]
     Active Substance: DOXEPIN
     Dosage: 100 MILLIGRAM, QD (1 EVERY 1 DAYS)
     Route: 048
  109. DOXEPIN [Interacting]
     Active Substance: DOXEPIN
     Dosage: 150 MILLIGRAM, QD (1 EVERY 1 DAYS)
  110. DOXEPIN [Interacting]
     Active Substance: DOXEPIN
     Dosage: 150 MILLIGRAM, QD (1 EVERY 1 DAYS)
     Route: 048
  111. DOXEPIN [Interacting]
     Active Substance: DOXEPIN
     Dosage: 150 MILLIGRAM, QD (1 EVERY 1 DAYS)
  112. DOXEPIN [Interacting]
     Active Substance: DOXEPIN
     Dosage: 150 MILLIGRAM, QD (1 EVERY 1 DAYS)
     Route: 048
  113. QUETIAPINE [Interacting]
     Active Substance: QUETIAPINE
     Indication: Major depression
  114. QUETIAPINE [Interacting]
     Active Substance: QUETIAPINE
     Indication: Affective disorder
  115. QUETIAPINE [Interacting]
     Active Substance: QUETIAPINE
     Route: 065
  116. QUETIAPINE [Interacting]
     Active Substance: QUETIAPINE
     Route: 065
  117. QUETIAPINE [Interacting]
     Active Substance: QUETIAPINE
  118. QUETIAPINE [Interacting]
     Active Substance: QUETIAPINE
  119. QUETIAPINE [Interacting]
     Active Substance: QUETIAPINE
     Route: 065
  120. QUETIAPINE [Interacting]
     Active Substance: QUETIAPINE
     Route: 065
  121. QUETIAPINE [Interacting]
     Active Substance: QUETIAPINE
     Dosage: 100 MILLIGRAM, QD (1 EVERY 1 DAYS)
  122. QUETIAPINE [Interacting]
     Active Substance: QUETIAPINE
     Dosage: 100 MILLIGRAM, QD (1 EVERY 1 DAYS)
     Route: 048
  123. QUETIAPINE [Interacting]
     Active Substance: QUETIAPINE
     Dosage: 100 MILLIGRAM, QD (1 EVERY 1 DAYS)
  124. QUETIAPINE [Interacting]
     Active Substance: QUETIAPINE
     Dosage: 100 MILLIGRAM, QD (1 EVERY 1 DAYS)
     Route: 048
  125. DIVALPROEX SODIUM [Interacting]
     Active Substance: DIVALPROEX SODIUM
     Indication: Affective disorder
  126. DIVALPROEX SODIUM [Interacting]
     Active Substance: DIVALPROEX SODIUM
     Indication: Mania
  127. DIVALPROEX SODIUM [Interacting]
     Active Substance: DIVALPROEX SODIUM
     Route: 065
  128. DIVALPROEX SODIUM [Interacting]
     Active Substance: DIVALPROEX SODIUM
     Route: 065
  129. DIVALPROEX SODIUM [Interacting]
     Active Substance: DIVALPROEX SODIUM
     Dosage: 250 MILLIGRAM, QD (1 EVERY 1 DAYS)
  130. DIVALPROEX SODIUM [Interacting]
     Active Substance: DIVALPROEX SODIUM
     Dosage: 250 MILLIGRAM, QD (1 EVERY 1 DAYS)
  131. DIVALPROEX SODIUM [Interacting]
     Active Substance: DIVALPROEX SODIUM
     Dosage: 250 MILLIGRAM, QD (1 EVERY 1 DAYS)
     Route: 048
  132. DIVALPROEX SODIUM [Interacting]
     Active Substance: DIVALPROEX SODIUM
     Dosage: 250 MILLIGRAM, QD (1 EVERY 1 DAYS)
     Route: 048
  133. DIVALPROEX SODIUM [Interacting]
     Active Substance: DIVALPROEX SODIUM
     Dosage: 500 MILLIGRAM, QD (1 EVERY 1 DAYS)
  134. DIVALPROEX SODIUM [Interacting]
     Active Substance: DIVALPROEX SODIUM
     Dosage: 500 MILLIGRAM, QD (1 EVERY 1 DAYS)
     Route: 048
  135. DIVALPROEX SODIUM [Interacting]
     Active Substance: DIVALPROEX SODIUM
     Dosage: 500 MILLIGRAM, QD (1 EVERY 1 DAYS)
  136. DIVALPROEX SODIUM [Interacting]
     Active Substance: DIVALPROEX SODIUM
     Dosage: 500 MILLIGRAM, QD (1 EVERY 1 DAYS)
     Route: 048
  137. FLUOXETINE [Interacting]
     Active Substance: FLUOXETINE HYDROCHLORIDE
     Indication: Major depression
     Dosage: 20 MILLIGRAM, QD (1 EVERY 1 DAYS)
     Route: 048
  138. FLUOXETINE [Interacting]
     Active Substance: FLUOXETINE HYDROCHLORIDE
     Dosage: 20 MILLIGRAM, QD (1 EVERY 1 DAYS)
  139. FLUOXETINE [Interacting]
     Active Substance: FLUOXETINE HYDROCHLORIDE
     Dosage: 20 MILLIGRAM, QD (1 EVERY 1 DAYS)
  140. FLUOXETINE [Interacting]
     Active Substance: FLUOXETINE HYDROCHLORIDE
     Dosage: 20 MILLIGRAM, QD (1 EVERY 1 DAYS)
     Route: 048
  141. FLUOXETINE [Interacting]
     Active Substance: FLUOXETINE HYDROCHLORIDE
     Dosage: 60 MILLIGRAM, QD (1 EVERY 1 DAYS)
     Route: 048
  142. FLUOXETINE [Interacting]
     Active Substance: FLUOXETINE HYDROCHLORIDE
     Dosage: 60 MILLIGRAM, QD (1 EVERY 1 DAYS)
  143. FLUOXETINE [Interacting]
     Active Substance: FLUOXETINE HYDROCHLORIDE
     Dosage: 60 MILLIGRAM, QD (1 EVERY 1 DAYS)
  144. FLUOXETINE [Interacting]
     Active Substance: FLUOXETINE HYDROCHLORIDE
     Dosage: 60 MILLIGRAM, QD (1 EVERY 1 DAYS)
     Route: 048
  145. FLUOXETINE [Interacting]
     Active Substance: FLUOXETINE HYDROCHLORIDE
     Dosage: 80 MILLIGRAM, QD (1 EVERY 1 DAYS)
  146. FLUOXETINE [Interacting]
     Active Substance: FLUOXETINE HYDROCHLORIDE
     Dosage: 80 MILLIGRAM, QD (1 EVERY 1 DAYS)
  147. FLUOXETINE [Interacting]
     Active Substance: FLUOXETINE HYDROCHLORIDE
     Dosage: 80 MILLIGRAM, QD (1 EVERY 1 DAYS)
     Route: 048
  148. FLUOXETINE [Interacting]
     Active Substance: FLUOXETINE HYDROCHLORIDE
     Dosage: 80 MILLIGRAM, QD (1 EVERY 1 DAYS)
     Route: 048
  149. FLUOXETINE [Interacting]
     Active Substance: FLUOXETINE HYDROCHLORIDE
     Dosage: 40 MILLIGRAM, QD (1 EVERY 1 DAYS)
  150. FLUOXETINE [Interacting]
     Active Substance: FLUOXETINE HYDROCHLORIDE
     Dosage: 40 MILLIGRAM, QD (1 EVERY 1 DAYS)
  151. FLUOXETINE [Interacting]
     Active Substance: FLUOXETINE HYDROCHLORIDE
     Dosage: 40 MILLIGRAM, QD (1 EVERY 1 DAYS)
     Route: 048
  152. FLUOXETINE [Interacting]
     Active Substance: FLUOXETINE HYDROCHLORIDE
     Dosage: 40 MILLIGRAM, QD (1 EVERY 1 DAYS)
     Route: 048
  153. FLUOXETINE HYDROCHLORIDE [Interacting]
     Active Substance: FLUOXETINE HYDROCHLORIDE
     Indication: Major depression
     Route: 048
  154. FLUOXETINE HYDROCHLORIDE [Interacting]
     Active Substance: FLUOXETINE HYDROCHLORIDE
  155. FLUOXETINE HYDROCHLORIDE [Interacting]
     Active Substance: FLUOXETINE HYDROCHLORIDE
  156. FLUOXETINE HYDROCHLORIDE [Interacting]
     Active Substance: FLUOXETINE HYDROCHLORIDE
     Route: 048
  157. FLUOXETINE HYDROCHLORIDE [Interacting]
     Active Substance: FLUOXETINE HYDROCHLORIDE
     Dosage: 60 MILLIGRAM, QD (1 EVERY 1 DAYS)
     Route: 048
  158. FLUOXETINE HYDROCHLORIDE [Interacting]
     Active Substance: FLUOXETINE HYDROCHLORIDE
     Dosage: 60 MILLIGRAM, QD (1 EVERY 1 DAYS)
  159. FLUOXETINE HYDROCHLORIDE [Interacting]
     Active Substance: FLUOXETINE HYDROCHLORIDE
     Dosage: 60 MILLIGRAM, QD (1 EVERY 1 DAYS)
  160. FLUOXETINE HYDROCHLORIDE [Interacting]
     Active Substance: FLUOXETINE HYDROCHLORIDE
     Dosage: 60 MILLIGRAM, QD (1 EVERY 1 DAYS)
     Route: 048
  161. FLUOXETINE HYDROCHLORIDE [Interacting]
     Active Substance: FLUOXETINE HYDROCHLORIDE
     Dosage: 40 MILLIGRAM, QD (1 EVERY 1 DAYS)
  162. FLUOXETINE HYDROCHLORIDE [Interacting]
     Active Substance: FLUOXETINE HYDROCHLORIDE
     Dosage: 40 MILLIGRAM, QD (1 EVERY 1 DAYS)
     Route: 048
  163. FLUOXETINE HYDROCHLORIDE [Interacting]
     Active Substance: FLUOXETINE HYDROCHLORIDE
     Dosage: 40 MILLIGRAM, QD (1 EVERY 1 DAYS)
  164. FLUOXETINE HYDROCHLORIDE [Interacting]
     Active Substance: FLUOXETINE HYDROCHLORIDE
     Dosage: 40 MILLIGRAM, QD (1 EVERY 1 DAYS)
     Route: 048
  165. FLUOXETINE HYDROCHLORIDE [Interacting]
     Active Substance: FLUOXETINE HYDROCHLORIDE
  166. FLUOXETINE HYDROCHLORIDE [Interacting]
     Active Substance: FLUOXETINE HYDROCHLORIDE
  167. FLUOXETINE HYDROCHLORIDE [Interacting]
     Active Substance: FLUOXETINE HYDROCHLORIDE
     Route: 048
  168. FLUOXETINE HYDROCHLORIDE [Interacting]
     Active Substance: FLUOXETINE HYDROCHLORIDE
     Route: 048
  169. FLUOXETINE HYDROCHLORIDE [Interacting]
     Active Substance: FLUOXETINE HYDROCHLORIDE
     Dosage: 20 MILLIGRAM, QD (1 EVERY 1 DAYS
     Route: 048
  170. FLUOXETINE HYDROCHLORIDE [Interacting]
     Active Substance: FLUOXETINE HYDROCHLORIDE
     Dosage: 20 MILLIGRAM, QD (1 EVERY 1 DAYS
     Route: 048
  171. FLUOXETINE HYDROCHLORIDE [Interacting]
     Active Substance: FLUOXETINE HYDROCHLORIDE
     Dosage: 20 MILLIGRAM, QD (1 EVERY 1 DAYS
  172. FLUOXETINE HYDROCHLORIDE [Interacting]
     Active Substance: FLUOXETINE HYDROCHLORIDE
     Dosage: 20 MILLIGRAM, QD (1 EVERY 1 DAYS
  173. FLUOXETINE HYDROCHLORIDE [Interacting]
     Active Substance: FLUOXETINE HYDROCHLORIDE
     Dosage: 80 MILLIGRAM, QD (1 EVERY 1 DAY)
     Route: 048
  174. FLUOXETINE HYDROCHLORIDE [Interacting]
     Active Substance: FLUOXETINE HYDROCHLORIDE
     Dosage: 80 MILLIGRAM, QD (1 EVERY 1 DAY)
  175. FLUOXETINE HYDROCHLORIDE [Interacting]
     Active Substance: FLUOXETINE HYDROCHLORIDE
     Dosage: 80 MILLIGRAM, QD (1 EVERY 1 DAY)
  176. FLUOXETINE HYDROCHLORIDE [Interacting]
     Active Substance: FLUOXETINE HYDROCHLORIDE
     Dosage: 80 MILLIGRAM, QD (1 EVERY 1 DAY)
     Route: 048
  177. FLUOXETINE HYDROCHLORIDE [Interacting]
     Active Substance: FLUOXETINE HYDROCHLORIDE
     Route: 048
  178. FLUOXETINE HYDROCHLORIDE [Interacting]
     Active Substance: FLUOXETINE HYDROCHLORIDE
  179. FLUOXETINE HYDROCHLORIDE [Interacting]
     Active Substance: FLUOXETINE HYDROCHLORIDE
  180. FLUOXETINE HYDROCHLORIDE [Interacting]
     Active Substance: FLUOXETINE HYDROCHLORIDE
     Route: 048
  181. FLUOXETINE HYDROCHLORIDE [Interacting]
     Active Substance: FLUOXETINE HYDROCHLORIDE
     Dosage: 80 MILLIGRAM, QD
     Route: 065
  182. FLUOXETINE HYDROCHLORIDE [Interacting]
     Active Substance: FLUOXETINE HYDROCHLORIDE
     Dosage: 80 MILLIGRAM, QD
     Route: 065
  183. FLUOXETINE HYDROCHLORIDE [Interacting]
     Active Substance: FLUOXETINE HYDROCHLORIDE
     Dosage: 80 MILLIGRAM, QD
  184. FLUOXETINE HYDROCHLORIDE [Interacting]
     Active Substance: FLUOXETINE HYDROCHLORIDE
     Dosage: 80 MILLIGRAM, QD
  185. DEPAKOTE [Interacting]
     Active Substance: DIVALPROEX SODIUM
     Indication: Mania
     Dosage: 750 MILLIGRAM, QD (1 EVERY 1 DAYS)
  186. DEPAKOTE [Interacting]
     Active Substance: DIVALPROEX SODIUM
     Indication: Affective disorder
     Dosage: 750 MILLIGRAM, QD (1 EVERY 1 DAYS)
  187. DEPAKOTE [Interacting]
     Active Substance: DIVALPROEX SODIUM
     Dosage: 750 MILLIGRAM, QD (1 EVERY 1 DAYS)
     Route: 048
  188. DEPAKOTE [Interacting]
     Active Substance: DIVALPROEX SODIUM
     Dosage: 750 MILLIGRAM, QD (1 EVERY 1 DAYS)
     Route: 048
  189. DEPAKOTE [Interacting]
     Active Substance: DIVALPROEX SODIUM
     Dosage: 250 MILLIGRAM, QD (1 EVERY 1 DAYS)
  190. DEPAKOTE [Interacting]
     Active Substance: DIVALPROEX SODIUM
     Dosage: 250 MILLIGRAM, QD (1 EVERY 1 DAYS)
  191. DEPAKOTE [Interacting]
     Active Substance: DIVALPROEX SODIUM
     Dosage: 250 MILLIGRAM, QD (1 EVERY 1 DAYS)
     Route: 048
  192. DEPAKOTE [Interacting]
     Active Substance: DIVALPROEX SODIUM
     Dosage: 250 MILLIGRAM, QD (1 EVERY 1 DAYS)
     Route: 048
  193. DEPAKOTE [Interacting]
     Active Substance: DIVALPROEX SODIUM
     Dosage: 500 MILLIGRAM, QD (1 EVERY 1 DAYS)
  194. DEPAKOTE [Interacting]
     Active Substance: DIVALPROEX SODIUM
     Dosage: 500 MILLIGRAM, QD (1 EVERY 1 DAYS)
     Route: 048
  195. DEPAKOTE [Interacting]
     Active Substance: DIVALPROEX SODIUM
     Dosage: 500 MILLIGRAM, QD (1 EVERY 1 DAYS)
  196. DEPAKOTE [Interacting]
     Active Substance: DIVALPROEX SODIUM
     Dosage: 500 MILLIGRAM, QD (1 EVERY 1 DAYS)
     Route: 048
  197. LORAZEPAM [Interacting]
     Active Substance: LORAZEPAM
     Indication: Withdrawal syndrome
     Dosage: UNK, QD (1 EVERY 24 HOURS)
  198. LORAZEPAM [Interacting]
     Active Substance: LORAZEPAM
     Indication: Anxiety
     Dosage: UNK, QD (1 EVERY 24 HOURS)
  199. LORAZEPAM [Interacting]
     Active Substance: LORAZEPAM
     Indication: Drug withdrawal syndrome
     Dosage: UNK, QD (1 EVERY 24 HOURS)
     Route: 048
  200. LORAZEPAM [Interacting]
     Active Substance: LORAZEPAM
     Indication: Affective disorder
     Dosage: UNK, QD (1 EVERY 24 HOURS)
     Route: 048
  201. LORAZEPAM [Interacting]
     Active Substance: LORAZEPAM
     Dosage: 2 MILLIGRAM, QID
     Route: 048
  202. LORAZEPAM [Interacting]
     Active Substance: LORAZEPAM
     Dosage: 2 MILLIGRAM, QID
  203. LORAZEPAM [Interacting]
     Active Substance: LORAZEPAM
     Dosage: 2 MILLIGRAM, QID
  204. LORAZEPAM [Interacting]
     Active Substance: LORAZEPAM
     Dosage: 2 MILLIGRAM, QID
     Route: 048
  205. LORAZEPAM [Interacting]
     Active Substance: LORAZEPAM
  206. LORAZEPAM [Interacting]
     Active Substance: LORAZEPAM
  207. LORAZEPAM [Interacting]
     Active Substance: LORAZEPAM
     Route: 048
  208. LORAZEPAM [Interacting]
     Active Substance: LORAZEPAM
     Route: 048
  209. LORAZEPAM [Interacting]
     Active Substance: LORAZEPAM
  210. LORAZEPAM [Interacting]
     Active Substance: LORAZEPAM
  211. LORAZEPAM [Interacting]
     Active Substance: LORAZEPAM
     Route: 048
  212. LORAZEPAM [Interacting]
     Active Substance: LORAZEPAM
     Route: 048
  213. LORAZEPAM [Interacting]
     Active Substance: LORAZEPAM
     Route: 048
  214. LORAZEPAM [Interacting]
     Active Substance: LORAZEPAM
  215. LORAZEPAM [Interacting]
     Active Substance: LORAZEPAM
  216. LORAZEPAM [Interacting]
     Active Substance: LORAZEPAM
     Route: 048
  217. LORAZEPAM [Interacting]
     Active Substance: LORAZEPAM
  218. LORAZEPAM [Interacting]
     Active Substance: LORAZEPAM
  219. LORAZEPAM [Interacting]
     Active Substance: LORAZEPAM
     Route: 065
  220. LORAZEPAM [Interacting]
     Active Substance: LORAZEPAM
     Route: 065
  221. LORAZEPAM [Interacting]
     Active Substance: LORAZEPAM
  222. LORAZEPAM [Interacting]
     Active Substance: LORAZEPAM
  223. LORAZEPAM [Interacting]
     Active Substance: LORAZEPAM
     Route: 048
  224. LORAZEPAM [Interacting]
     Active Substance: LORAZEPAM
     Route: 048
  225. LORAZEPAM [Interacting]
     Active Substance: LORAZEPAM
  226. LORAZEPAM [Interacting]
     Active Substance: LORAZEPAM
  227. LORAZEPAM [Interacting]
     Active Substance: LORAZEPAM
     Route: 048
  228. LORAZEPAM [Interacting]
     Active Substance: LORAZEPAM
     Route: 048
  229. LORAZEPAM [Interacting]
     Active Substance: LORAZEPAM
  230. LORAZEPAM [Interacting]
     Active Substance: LORAZEPAM
  231. LORAZEPAM [Interacting]
     Active Substance: LORAZEPAM
     Route: 030
  232. LORAZEPAM [Interacting]
     Active Substance: LORAZEPAM
     Route: 030
  233. LORAZEPAM [Interacting]
     Active Substance: LORAZEPAM
  234. LORAZEPAM [Interacting]
     Active Substance: LORAZEPAM
     Route: 048
  235. LORAZEPAM [Interacting]
     Active Substance: LORAZEPAM
  236. LORAZEPAM [Interacting]
     Active Substance: LORAZEPAM
     Route: 048
  237. LORAZEPAM [Interacting]
     Active Substance: LORAZEPAM
  238. LORAZEPAM [Interacting]
     Active Substance: LORAZEPAM
  239. LORAZEPAM [Interacting]
     Active Substance: LORAZEPAM
     Route: 048
  240. LORAZEPAM [Interacting]
     Active Substance: LORAZEPAM
     Route: 048
  241. LORAZEPAM [Interacting]
     Active Substance: LORAZEPAM
  242. LORAZEPAM [Interacting]
     Active Substance: LORAZEPAM
  243. LORAZEPAM [Interacting]
     Active Substance: LORAZEPAM
     Route: 048
  244. LORAZEPAM [Interacting]
     Active Substance: LORAZEPAM
     Route: 048
  245. LORAZEPAM [Interacting]
     Active Substance: LORAZEPAM
     Dosage: 1 MILLIGRAM, QD (1 EVERY 24 HOURS)
  246. LORAZEPAM [Interacting]
     Active Substance: LORAZEPAM
     Dosage: 1 MILLIGRAM, QD (1 EVERY 24 HOURS)
  247. LORAZEPAM [Interacting]
     Active Substance: LORAZEPAM
     Dosage: 1 MILLIGRAM, QD (1 EVERY 24 HOURS)
     Route: 030
  248. LORAZEPAM [Interacting]
     Active Substance: LORAZEPAM
     Dosage: 1 MILLIGRAM, QD (1 EVERY 24 HOURS)
     Route: 030
  249. LORAZEPAM [Interacting]
     Active Substance: LORAZEPAM
     Route: 065
  250. LORAZEPAM [Interacting]
     Active Substance: LORAZEPAM
     Route: 065
  251. LORAZEPAM [Interacting]
     Active Substance: LORAZEPAM
  252. LORAZEPAM [Interacting]
     Active Substance: LORAZEPAM
  253. LORAZEPAM [Interacting]
     Active Substance: LORAZEPAM
     Route: 065
  254. LORAZEPAM [Interacting]
     Active Substance: LORAZEPAM
  255. LORAZEPAM [Interacting]
     Active Substance: LORAZEPAM
  256. LORAZEPAM [Interacting]
     Active Substance: LORAZEPAM
     Route: 065
  257. LORAZEPAM [Interacting]
     Active Substance: LORAZEPAM
  258. LORAZEPAM [Interacting]
     Active Substance: LORAZEPAM
  259. LORAZEPAM [Interacting]
     Active Substance: LORAZEPAM
     Route: 065
  260. LORAZEPAM [Interacting]
     Active Substance: LORAZEPAM
     Route: 065
  261. LORAZEPAM [Interacting]
     Active Substance: LORAZEPAM
  262. LORAZEPAM [Interacting]
     Active Substance: LORAZEPAM
     Route: 065
  263. LORAZEPAM [Interacting]
     Active Substance: LORAZEPAM
  264. LORAZEPAM [Interacting]
     Active Substance: LORAZEPAM
     Route: 065
  265. LORAZEPAM [Interacting]
     Active Substance: LORAZEPAM
     Dosage: 1 MILLIGRAM, QD (1 EVERY 1 DAYS)
     Route: 030
  266. LORAZEPAM [Interacting]
     Active Substance: LORAZEPAM
     Dosage: 1 MILLIGRAM, QD (1 EVERY 1 DAYS)
     Route: 030
  267. LORAZEPAM [Interacting]
     Active Substance: LORAZEPAM
     Dosage: 1 MILLIGRAM, QD (1 EVERY 1 DAYS)
  268. LORAZEPAM [Interacting]
     Active Substance: LORAZEPAM
     Dosage: 1 MILLIGRAM, QD (1 EVERY 1 DAYS)
  269. LORAZEPAM [Interacting]
     Active Substance: LORAZEPAM
     Route: 048
  270. LORAZEPAM [Interacting]
     Active Substance: LORAZEPAM
  271. LORAZEPAM [Interacting]
     Active Substance: LORAZEPAM
  272. LORAZEPAM [Interacting]
     Active Substance: LORAZEPAM
     Route: 048
  273. LORAZEPAM [Interacting]
     Active Substance: LORAZEPAM
  274. LORAZEPAM [Interacting]
     Active Substance: LORAZEPAM
  275. LORAZEPAM [Interacting]
     Active Substance: LORAZEPAM
     Route: 065
  276. LORAZEPAM [Interacting]
     Active Substance: LORAZEPAM
     Route: 065
  277. LORAZEPAM [Interacting]
     Active Substance: LORAZEPAM
  278. LORAZEPAM [Interacting]
     Active Substance: LORAZEPAM
     Route: 048
  279. LORAZEPAM [Interacting]
     Active Substance: LORAZEPAM
  280. LORAZEPAM [Interacting]
     Active Substance: LORAZEPAM
     Route: 048
  281. METHADONE [Interacting]
     Active Substance: METHADONE HYDROCHLORIDE
     Indication: Drug use disorder
     Dosage: 60 MILLIGRAM, QD (1 EVERY 24 HOURS)
     Route: 065
  282. METHADONE [Interacting]
     Active Substance: METHADONE HYDROCHLORIDE
     Dosage: 60 MILLIGRAM, QD (1 EVERY 24 HOURS)
  283. METHADONE [Interacting]
     Active Substance: METHADONE HYDROCHLORIDE
     Dosage: 60 MILLIGRAM, QD (1 EVERY 24 HOURS)
  284. METHADONE [Interacting]
     Active Substance: METHADONE HYDROCHLORIDE
     Dosage: 60 MILLIGRAM, QD (1 EVERY 24 HOURS)
     Route: 065
  285. METHADONE [Interacting]
     Active Substance: METHADONE HYDROCHLORIDE
     Dosage: 75 MILLIGRAM, QD (1 EVERY 1 DAYS)
  286. METHADONE [Interacting]
     Active Substance: METHADONE HYDROCHLORIDE
     Dosage: 75 MILLIGRAM, QD (1 EVERY 1 DAYS)
  287. METHADONE [Interacting]
     Active Substance: METHADONE HYDROCHLORIDE
     Dosage: 75 MILLIGRAM, QD (1 EVERY 1 DAYS)
     Route: 048
  288. METHADONE [Interacting]
     Active Substance: METHADONE HYDROCHLORIDE
     Dosage: 75 MILLIGRAM, QD (1 EVERY 1 DAYS)
     Route: 048
  289. METHADONE [Interacting]
     Active Substance: METHADONE HYDROCHLORIDE
     Dosage: 40 MILLIGRAM, QD (1 EVERY 24 HOURS)
  290. METHADONE [Interacting]
     Active Substance: METHADONE HYDROCHLORIDE
     Dosage: 40 MILLIGRAM, QD (1 EVERY 24 HOURS)
  291. METHADONE [Interacting]
     Active Substance: METHADONE HYDROCHLORIDE
     Dosage: 40 MILLIGRAM, QD (1 EVERY 24 HOURS)
     Route: 065
  292. METHADONE [Interacting]
     Active Substance: METHADONE HYDROCHLORIDE
     Dosage: 40 MILLIGRAM, QD (1 EVERY 24 HOURS)
     Route: 065
  293. METHADONE [Interacting]
     Active Substance: METHADONE HYDROCHLORIDE
     Dosage: 50 MILLIGRAM, QD (1 EVERY 24 HOURS)
     Route: 065
  294. METHADONE [Interacting]
     Active Substance: METHADONE HYDROCHLORIDE
     Dosage: 50 MILLIGRAM, QD (1 EVERY 24 HOURS)
  295. METHADONE [Interacting]
     Active Substance: METHADONE HYDROCHLORIDE
     Dosage: 50 MILLIGRAM, QD (1 EVERY 24 HOURS)
  296. METHADONE [Interacting]
     Active Substance: METHADONE HYDROCHLORIDE
     Dosage: 50 MILLIGRAM, QD (1 EVERY 24 HOURS)
     Route: 065
  297. METHADONE [Interacting]
     Active Substance: METHADONE HYDROCHLORIDE
     Dosage: 60 MILLIGRAM, QD (1 EVERY 1 DAY)
  298. METHADONE [Interacting]
     Active Substance: METHADONE HYDROCHLORIDE
     Dosage: 60 MILLIGRAM, QD (1 EVERY 1 DAY)
     Route: 048
  299. METHADONE [Interacting]
     Active Substance: METHADONE HYDROCHLORIDE
     Dosage: 60 MILLIGRAM, QD (1 EVERY 1 DAY)
  300. METHADONE [Interacting]
     Active Substance: METHADONE HYDROCHLORIDE
     Dosage: 60 MILLIGRAM, QD (1 EVERY 1 DAY)
     Route: 048
  301. METHADONE [Interacting]
     Active Substance: METHADONE HYDROCHLORIDE
     Dosage: 30 MILLIGRAM, QD (1 EVERY 24 HOURS)
     Route: 065
  302. METHADONE [Interacting]
     Active Substance: METHADONE HYDROCHLORIDE
     Dosage: 30 MILLIGRAM, QD (1 EVERY 24 HOURS)
     Route: 065
  303. METHADONE [Interacting]
     Active Substance: METHADONE HYDROCHLORIDE
     Dosage: 30 MILLIGRAM, QD (1 EVERY 24 HOURS)
  304. METHADONE [Interacting]
     Active Substance: METHADONE HYDROCHLORIDE
     Dosage: 30 MILLIGRAM, QD (1 EVERY 24 HOURS)
  305. METHADONE [Interacting]
     Active Substance: METHADONE HYDROCHLORIDE
     Dosage: 75 MILLIGRAM, QD (1 EVERY 1 DAYS)
  306. METHADONE [Interacting]
     Active Substance: METHADONE HYDROCHLORIDE
     Dosage: 75 MILLIGRAM, QD (1 EVERY 1 DAYS)
  307. METHADONE [Interacting]
     Active Substance: METHADONE HYDROCHLORIDE
     Dosage: 75 MILLIGRAM, QD (1 EVERY 1 DAYS)
     Route: 048
  308. METHADONE [Interacting]
     Active Substance: METHADONE HYDROCHLORIDE
     Dosage: 75 MILLIGRAM, QD (1 EVERY 1 DAYS)
     Route: 048
  309. METHADONE [Interacting]
     Active Substance: METHADONE HYDROCHLORIDE
     Dosage: 60 MILLIGRAM, QD (1 EVERY 1 DAYS)
     Route: 048
  310. METHADONE [Interacting]
     Active Substance: METHADONE HYDROCHLORIDE
     Dosage: 60 MILLIGRAM, QD (1 EVERY 1 DAYS)
  311. METHADONE [Interacting]
     Active Substance: METHADONE HYDROCHLORIDE
     Dosage: 60 MILLIGRAM, QD (1 EVERY 1 DAYS)
  312. METHADONE [Interacting]
     Active Substance: METHADONE HYDROCHLORIDE
     Dosage: 60 MILLIGRAM, QD (1 EVERY 1 DAYS)
     Route: 048
  313. METHADONE [Interacting]
     Active Substance: METHADONE HYDROCHLORIDE
     Route: 048
  314. METHADONE [Interacting]
     Active Substance: METHADONE HYDROCHLORIDE
  315. METHADONE [Interacting]
     Active Substance: METHADONE HYDROCHLORIDE
  316. METHADONE [Interacting]
     Active Substance: METHADONE HYDROCHLORIDE
     Route: 048
  317. METHADONE [Interacting]
     Active Substance: METHADONE HYDROCHLORIDE
  318. METHADONE [Interacting]
     Active Substance: METHADONE HYDROCHLORIDE
  319. METHADONE [Interacting]
     Active Substance: METHADONE HYDROCHLORIDE
     Route: 048
  320. METHADONE [Interacting]
     Active Substance: METHADONE HYDROCHLORIDE
     Route: 048
  321. QUETIAPINE FUMARATE [Interacting]
     Active Substance: QUETIAPINE FUMARATE
     Indication: Major depression
     Route: 065
  322. QUETIAPINE FUMARATE [Interacting]
     Active Substance: QUETIAPINE FUMARATE
     Indication: Affective disorder
  323. QUETIAPINE FUMARATE [Interacting]
     Active Substance: QUETIAPINE FUMARATE
  324. QUETIAPINE FUMARATE [Interacting]
     Active Substance: QUETIAPINE FUMARATE
     Route: 065
  325. QUETIAPINE FUMARATE [Interacting]
     Active Substance: QUETIAPINE FUMARATE
     Route: 048
  326. QUETIAPINE FUMARATE [Interacting]
     Active Substance: QUETIAPINE FUMARATE
     Route: 048
  327. QUETIAPINE FUMARATE [Interacting]
     Active Substance: QUETIAPINE FUMARATE
  328. QUETIAPINE FUMARATE [Interacting]
     Active Substance: QUETIAPINE FUMARATE
  329. QUETIAPINE FUMARATE [Interacting]
     Active Substance: QUETIAPINE FUMARATE
  330. QUETIAPINE FUMARATE [Interacting]
     Active Substance: QUETIAPINE FUMARATE
     Route: 048
  331. QUETIAPINE FUMARATE [Interacting]
     Active Substance: QUETIAPINE FUMARATE
     Route: 048
  332. QUETIAPINE FUMARATE [Interacting]
     Active Substance: QUETIAPINE FUMARATE
  333. QUETIAPINE FUMARATE [Interacting]
     Active Substance: QUETIAPINE FUMARATE
     Dosage: 100 MILLIGRAM, QD (1 EVERY 1 DAYS)
     Route: 048
  334. QUETIAPINE FUMARATE [Interacting]
     Active Substance: QUETIAPINE FUMARATE
     Dosage: 100 MILLIGRAM, QD (1 EVERY 1 DAYS)
     Route: 048
  335. QUETIAPINE FUMARATE [Interacting]
     Active Substance: QUETIAPINE FUMARATE
     Dosage: 100 MILLIGRAM, QD (1 EVERY 1 DAYS)
  336. QUETIAPINE FUMARATE [Interacting]
     Active Substance: QUETIAPINE FUMARATE
     Dosage: 100 MILLIGRAM, QD (1 EVERY 1 DAYS)
  337. QUETIAPINE FUMARATE [Interacting]
     Active Substance: QUETIAPINE FUMARATE
     Dosage: 50 MILLIGRAM, QID
  338. QUETIAPINE FUMARATE [Interacting]
     Active Substance: QUETIAPINE FUMARATE
     Dosage: 50 MILLIGRAM, QID
  339. QUETIAPINE FUMARATE [Interacting]
     Active Substance: QUETIAPINE FUMARATE
     Dosage: 50 MILLIGRAM, QID
     Route: 048
  340. QUETIAPINE FUMARATE [Interacting]
     Active Substance: QUETIAPINE FUMARATE
     Dosage: 50 MILLIGRAM, QID
     Route: 048
  341. QUETIAPINE FUMARATE [Interacting]
     Active Substance: QUETIAPINE FUMARATE
     Route: 065
  342. QUETIAPINE FUMARATE [Interacting]
     Active Substance: QUETIAPINE FUMARATE
     Route: 065
  343. QUETIAPINE FUMARATE [Interacting]
     Active Substance: QUETIAPINE FUMARATE
  344. QUETIAPINE FUMARATE [Interacting]
     Active Substance: QUETIAPINE FUMARATE
  345. RISPERDAL [Interacting]
     Active Substance: RISPERIDONE
     Indication: Affective disorder
     Dosage: 1 MILLIGRAM, QD (1 EVERY 1 DAYS)
     Route: 048
  346. RISPERDAL [Interacting]
     Active Substance: RISPERIDONE
     Dosage: 1 MILLIGRAM, QD (1 EVERY 1 DAYS)
  347. RISPERDAL [Interacting]
     Active Substance: RISPERIDONE
     Dosage: 1 MILLIGRAM, QD (1 EVERY 1 DAYS)
  348. RISPERDAL [Interacting]
     Active Substance: RISPERIDONE
     Dosage: 1 MILLIGRAM, QD (1 EVERY 1 DAYS)
     Route: 048
  349. RISPERDAL [Interacting]
     Active Substance: RISPERIDONE
     Dosage: 0.25 MILLIGRAM, QD (1 EVERY 1 DAYS)
     Route: 048
  350. RISPERDAL [Interacting]
     Active Substance: RISPERIDONE
     Dosage: 0.25 MILLIGRAM, QD (1 EVERY 1 DAYS)
  351. RISPERDAL [Interacting]
     Active Substance: RISPERIDONE
     Dosage: 0.25 MILLIGRAM, QD (1 EVERY 1 DAYS)
  352. RISPERDAL [Interacting]
     Active Substance: RISPERIDONE
     Dosage: 0.25 MILLIGRAM, QD (1 EVERY 1 DAYS)
     Route: 048
  353. RISPERIDONE [Interacting]
     Active Substance: RISPERIDONE
     Indication: Affective disorder
     Dosage: 1 MILLIGRAM, QD (1 EVERY 24 HOURS)
  354. RISPERIDONE [Interacting]
     Active Substance: RISPERIDONE
     Dosage: 1 MILLIGRAM, QD (1 EVERY 24 HOURS)
  355. RISPERIDONE [Interacting]
     Active Substance: RISPERIDONE
     Dosage: 1 MILLIGRAM, QD (1 EVERY 24 HOURS)
     Route: 048
  356. RISPERIDONE [Interacting]
     Active Substance: RISPERIDONE
     Dosage: 1 MILLIGRAM, QD (1 EVERY 24 HOURS)
     Route: 048
  357. RISPERIDONE [Interacting]
     Active Substance: RISPERIDONE
     Dosage: 0.25 MILLIGRAM, QD
  358. RISPERIDONE [Interacting]
     Active Substance: RISPERIDONE
     Dosage: 0.25 MILLIGRAM, QD
  359. RISPERIDONE [Interacting]
     Active Substance: RISPERIDONE
     Dosage: 0.25 MILLIGRAM, QD
     Route: 048
  360. RISPERIDONE [Interacting]
     Active Substance: RISPERIDONE
     Dosage: 0.25 MILLIGRAM, QD
     Route: 048
  361. DOXEPIN HYDROCHLORIDE [Interacting]
     Active Substance: DOXEPIN HYDROCHLORIDE
     Indication: Major depression
     Dosage: 100 MILLIGRAM, QD (1 EVERY 24 HOURS)
  362. DOXEPIN HYDROCHLORIDE [Interacting]
     Active Substance: DOXEPIN HYDROCHLORIDE
     Dosage: 100 MILLIGRAM, QD (1 EVERY 24 HOURS)
  363. DOXEPIN HYDROCHLORIDE [Interacting]
     Active Substance: DOXEPIN HYDROCHLORIDE
     Dosage: 100 MILLIGRAM, QD (1 EVERY 24 HOURS)
     Route: 048
  364. DOXEPIN HYDROCHLORIDE [Interacting]
     Active Substance: DOXEPIN HYDROCHLORIDE
     Dosage: 100 MILLIGRAM, QD (1 EVERY 24 HOURS)
     Route: 048
  365. DOXEPIN HYDROCHLORIDE [Interacting]
     Active Substance: DOXEPIN HYDROCHLORIDE
     Dosage: 150 MILLIGRAM, QD (1 EVERY 1 DAYS)
     Route: 048
  366. DOXEPIN HYDROCHLORIDE [Interacting]
     Active Substance: DOXEPIN HYDROCHLORIDE
     Dosage: 150 MILLIGRAM, QD (1 EVERY 1 DAYS)
     Route: 048
  367. DOXEPIN HYDROCHLORIDE [Interacting]
     Active Substance: DOXEPIN HYDROCHLORIDE
     Dosage: 150 MILLIGRAM, QD (1 EVERY 1 DAYS)
  368. DOXEPIN HYDROCHLORIDE [Interacting]
     Active Substance: DOXEPIN HYDROCHLORIDE
     Dosage: 150 MILLIGRAM, QD (1 EVERY 1 DAYS)
  369. DOXEPIN HYDROCHLORIDE [Interacting]
     Active Substance: DOXEPIN HYDROCHLORIDE
     Route: 065
  370. DOXEPIN HYDROCHLORIDE [Interacting]
     Active Substance: DOXEPIN HYDROCHLORIDE
     Route: 065
  371. DOXEPIN HYDROCHLORIDE [Interacting]
     Active Substance: DOXEPIN HYDROCHLORIDE
  372. DOXEPIN HYDROCHLORIDE [Interacting]
     Active Substance: DOXEPIN HYDROCHLORIDE
  373. DOXEPIN HYDROCHLORIDE [Interacting]
     Active Substance: DOXEPIN HYDROCHLORIDE
     Dosage: 50 MILLIGRAM, QD (1 EVERY 1 DAY)
     Route: 048
  374. DOXEPIN HYDROCHLORIDE [Interacting]
     Active Substance: DOXEPIN HYDROCHLORIDE
     Dosage: 50 MILLIGRAM, QD (1 EVERY 1 DAY)
     Route: 048
  375. DOXEPIN HYDROCHLORIDE [Interacting]
     Active Substance: DOXEPIN HYDROCHLORIDE
     Dosage: 50 MILLIGRAM, QD (1 EVERY 1 DAY)
  376. DOXEPIN HYDROCHLORIDE [Interacting]
     Active Substance: DOXEPIN HYDROCHLORIDE
     Dosage: 50 MILLIGRAM, QD (1 EVERY 1 DAY)
  377. DOXEPIN HYDROCHLORIDE [Interacting]
     Active Substance: DOXEPIN HYDROCHLORIDE
     Route: 048
  378. DOXEPIN HYDROCHLORIDE [Interacting]
     Active Substance: DOXEPIN HYDROCHLORIDE
     Route: 048
  379. DOXEPIN HYDROCHLORIDE [Interacting]
     Active Substance: DOXEPIN HYDROCHLORIDE
  380. DOXEPIN HYDROCHLORIDE [Interacting]
     Active Substance: DOXEPIN HYDROCHLORIDE
  381. DOXEPIN HYDROCHLORIDE [Interacting]
     Active Substance: DOXEPIN HYDROCHLORIDE
     Dosage: 150 MILLIGRAM, QD
     Route: 065
  382. DOXEPIN HYDROCHLORIDE [Interacting]
     Active Substance: DOXEPIN HYDROCHLORIDE
     Dosage: 150 MILLIGRAM, QD
     Route: 065
  383. DOXEPIN HYDROCHLORIDE [Interacting]
     Active Substance: DOXEPIN HYDROCHLORIDE
     Dosage: 150 MILLIGRAM, QD
  384. DOXEPIN HYDROCHLORIDE [Interacting]
     Active Substance: DOXEPIN HYDROCHLORIDE
     Dosage: 150 MILLIGRAM, QD
  385. DOXEPIN HYDROCHLORIDE [Interacting]
     Active Substance: DOXEPIN HYDROCHLORIDE
     Route: 048
  386. DOXEPIN HYDROCHLORIDE [Interacting]
     Active Substance: DOXEPIN HYDROCHLORIDE
     Route: 048
  387. DOXEPIN HYDROCHLORIDE [Interacting]
     Active Substance: DOXEPIN HYDROCHLORIDE
  388. DOXEPIN HYDROCHLORIDE [Interacting]
     Active Substance: DOXEPIN HYDROCHLORIDE
  389. DOXEPIN HYDROCHLORIDE [Interacting]
     Active Substance: DOXEPIN HYDROCHLORIDE
  390. DOXEPIN HYDROCHLORIDE [Interacting]
     Active Substance: DOXEPIN HYDROCHLORIDE
  391. DOXEPIN HYDROCHLORIDE [Interacting]
     Active Substance: DOXEPIN HYDROCHLORIDE
     Route: 065
  392. DOXEPIN HYDROCHLORIDE [Interacting]
     Active Substance: DOXEPIN HYDROCHLORIDE
     Route: 065
  393. SPIRIVA [Concomitant]
     Active Substance: TIOTROPIUM BROMIDE MONOHYDRATE
     Route: 065
  394. SPIRIVA [Concomitant]
     Active Substance: TIOTROPIUM BROMIDE MONOHYDRATE
  395. TIOTROPIUM BROMIDE [Concomitant]
     Active Substance: TIOTROPIUM BROMIDE
     Indication: Chronic obstructive pulmonary disease
  396. TIOTROPIUM BROMIDE [Concomitant]
     Active Substance: TIOTROPIUM BROMIDE
  397. TIOTROPIUM BROMIDE [Concomitant]
     Active Substance: TIOTROPIUM BROMIDE
     Route: 055
  398. TIOTROPIUM BROMIDE [Concomitant]
     Active Substance: TIOTROPIUM BROMIDE
     Route: 055
  399. TIOTROPIUM BROMIDE [Concomitant]
     Active Substance: TIOTROPIUM BROMIDE
     Dosage: 5 MILLIGRAM, QD
     Route: 065
  400. TIOTROPIUM BROMIDE [Concomitant]
     Active Substance: TIOTROPIUM BROMIDE
     Dosage: 5 MILLIGRAM, QD
     Route: 065
  401. TIOTROPIUM BROMIDE [Concomitant]
     Active Substance: TIOTROPIUM BROMIDE
     Dosage: 5 MILLIGRAM, QD
  402. TIOTROPIUM BROMIDE [Concomitant]
     Active Substance: TIOTROPIUM BROMIDE
     Dosage: 5 MILLIGRAM, QD
  403. TIOTROPIUM BROMIDE [Concomitant]
     Active Substance: TIOTROPIUM BROMIDE
     Dosage: 5 MICROGRAM, QD (1 EVERY 24 HOURS)
     Route: 065
  404. TIOTROPIUM BROMIDE [Concomitant]
     Active Substance: TIOTROPIUM BROMIDE
     Dosage: 5 MICROGRAM, QD (1 EVERY 24 HOURS)
     Route: 065
  405. TIOTROPIUM BROMIDE [Concomitant]
     Active Substance: TIOTROPIUM BROMIDE
     Dosage: 5 MICROGRAM, QD (1 EVERY 24 HOURS)
  406. TIOTROPIUM BROMIDE [Concomitant]
     Active Substance: TIOTROPIUM BROMIDE
     Dosage: 5 MICROGRAM, QD (1 EVERY 24 HOURS)
  407. TIOTROPIUM BROMIDE [Concomitant]
     Active Substance: TIOTROPIUM BROMIDE
     Route: 065
  408. TIOTROPIUM BROMIDE [Concomitant]
     Active Substance: TIOTROPIUM BROMIDE
     Route: 065
  409. TIOTROPIUM BROMIDE [Concomitant]
     Active Substance: TIOTROPIUM BROMIDE
  410. TIOTROPIUM BROMIDE [Concomitant]
     Active Substance: TIOTROPIUM BROMIDE
  411. TIOTROPIUM BROMIDE [Concomitant]
     Active Substance: TIOTROPIUM BROMIDE
     Dosage: 5 MICROGRAM, QD (1 EVERY 1 DAYS)
     Route: 055
  412. TIOTROPIUM BROMIDE [Concomitant]
     Active Substance: TIOTROPIUM BROMIDE
     Dosage: 5 MICROGRAM, QD (1 EVERY 1 DAYS)
  413. TIOTROPIUM BROMIDE [Concomitant]
     Active Substance: TIOTROPIUM BROMIDE
     Dosage: 5 MICROGRAM, QD (1 EVERY 1 DAYS)
  414. TIOTROPIUM BROMIDE [Concomitant]
     Active Substance: TIOTROPIUM BROMIDE
     Dosage: 5 MICROGRAM, QD (1 EVERY 1 DAYS)
     Route: 055
  415. NALOXONE [Concomitant]
     Active Substance: NALOXONE
     Indication: Pain
  416. NALOXONE [Concomitant]
     Active Substance: NALOXONE
  417. NALOXONE [Concomitant]
     Active Substance: NALOXONE
     Route: 065
  418. NALOXONE [Concomitant]
     Active Substance: NALOXONE
     Route: 065
  419. NALOXONE [Concomitant]
     Active Substance: NALOXONE
     Dosage: 500 MILLIGRAM, BID
  420. NALOXONE [Concomitant]
     Active Substance: NALOXONE
     Dosage: 500 MILLIGRAM, BID
  421. NALOXONE [Concomitant]
     Active Substance: NALOXONE
     Dosage: 500 MILLIGRAM, BID
     Route: 048
  422. NALOXONE [Concomitant]
     Active Substance: NALOXONE
     Dosage: 500 MILLIGRAM, BID
     Route: 048
  423. NALOXONE [Concomitant]
     Active Substance: NALOXONE
  424. NALOXONE [Concomitant]
     Active Substance: NALOXONE
     Route: 048
  425. NALOXONE [Concomitant]
     Active Substance: NALOXONE
  426. NALOXONE [Concomitant]
     Active Substance: NALOXONE
     Route: 048
  427. ESTRADIOL [Concomitant]
     Active Substance: ESTRADIOL
     Indication: Endometriosis
     Dosage: 0.5 MILLIGRAM, QD (1 EVERY 1 DAYS)
  428. ESTRADIOL [Concomitant]
     Active Substance: ESTRADIOL
     Dosage: 0.5 MILLIGRAM, QD (1 EVERY 1 DAYS)
     Route: 048
  429. ESTRADIOL [Concomitant]
     Active Substance: ESTRADIOL
     Dosage: 0.5 MILLIGRAM, QD (1 EVERY 1 DAYS)
     Route: 048
  430. ESTRADIOL [Concomitant]
     Active Substance: ESTRADIOL
     Dosage: 0.5 MILLIGRAM, QD (1 EVERY 1 DAYS)
  431. FUROSEMIDE [Concomitant]
     Active Substance: FUROSEMIDE
     Indication: Oedema peripheral
  432. FUROSEMIDE [Concomitant]
     Active Substance: FUROSEMIDE
  433. FUROSEMIDE [Concomitant]
     Active Substance: FUROSEMIDE
     Route: 065
  434. FUROSEMIDE [Concomitant]
     Active Substance: FUROSEMIDE
     Route: 065
  435. FUROSEMIDE [Concomitant]
     Active Substance: FUROSEMIDE
     Dosage: 40 MILLIGRAM, QD
     Route: 048
  436. FUROSEMIDE [Concomitant]
     Active Substance: FUROSEMIDE
     Dosage: 40 MILLIGRAM, QD
     Route: 048
  437. FUROSEMIDE [Concomitant]
     Active Substance: FUROSEMIDE
     Dosage: 40 MILLIGRAM, QD
  438. FUROSEMIDE [Concomitant]
     Active Substance: FUROSEMIDE
     Dosage: 40 MILLIGRAM, QD
  439. FUROSEMIDE [Concomitant]
     Active Substance: FUROSEMIDE
     Route: 048
  440. FUROSEMIDE [Concomitant]
     Active Substance: FUROSEMIDE
     Route: 048
  441. FUROSEMIDE [Concomitant]
     Active Substance: FUROSEMIDE
  442. FUROSEMIDE [Concomitant]
     Active Substance: FUROSEMIDE
  443. FUROSEMIDE [Concomitant]
     Active Substance: FUROSEMIDE
     Dosage: 40 MILLIGRAM, QD (1 EVERY 1 DAYS)
  444. FUROSEMIDE [Concomitant]
     Active Substance: FUROSEMIDE
     Dosage: 40 MILLIGRAM, QD (1 EVERY 1 DAYS)
  445. FUROSEMIDE [Concomitant]
     Active Substance: FUROSEMIDE
     Dosage: 40 MILLIGRAM, QD (1 EVERY 1 DAYS)
     Route: 048
  446. FUROSEMIDE [Concomitant]
     Active Substance: FUROSEMIDE
     Dosage: 40 MILLIGRAM, QD (1 EVERY 1 DAYS)
     Route: 048
  447. ALBUTEROL [Concomitant]
     Active Substance: ALBUTEROL
     Indication: Chronic obstructive pulmonary disease
     Route: 065
  448. ALBUTEROL [Concomitant]
     Active Substance: ALBUTEROL
     Route: 065
  449. ALBUTEROL [Concomitant]
     Active Substance: ALBUTEROL
  450. ALBUTEROL [Concomitant]
     Active Substance: ALBUTEROL
  451. ALBUTEROL [Concomitant]
     Active Substance: ALBUTEROL
     Route: 055
  452. ALBUTEROL [Concomitant]
     Active Substance: ALBUTEROL
     Route: 055
  453. ALBUTEROL [Concomitant]
     Active Substance: ALBUTEROL
  454. ALBUTEROL [Concomitant]
     Active Substance: ALBUTEROL
  455. ALBUTEROL [Concomitant]
     Active Substance: ALBUTEROL
     Dosage: 200 MICROGRAM, BID (2 EVERY 1 DAYS)
     Route: 065
  456. ALBUTEROL [Concomitant]
     Active Substance: ALBUTEROL
     Dosage: 200 MICROGRAM, BID (2 EVERY 1 DAYS)
     Route: 065
  457. ALBUTEROL [Concomitant]
     Active Substance: ALBUTEROL
     Dosage: 200 MICROGRAM, BID (2 EVERY 1 DAYS)
  458. ALBUTEROL [Concomitant]
     Active Substance: ALBUTEROL
     Dosage: 200 MICROGRAM, BID (2 EVERY 1 DAYS)
  459. ALBUTEROL [Concomitant]
     Active Substance: ALBUTEROL
     Route: 055
  460. ALBUTEROL [Concomitant]
     Active Substance: ALBUTEROL
     Route: 055
  461. ALBUTEROL [Concomitant]
     Active Substance: ALBUTEROL
  462. ALBUTEROL [Concomitant]
     Active Substance: ALBUTEROL
  463. ALBUTEROL [Concomitant]
     Active Substance: ALBUTEROL
  464. ALBUTEROL [Concomitant]
     Active Substance: ALBUTEROL
  465. ALBUTEROL [Concomitant]
     Active Substance: ALBUTEROL
     Route: 065
  466. ALBUTEROL [Concomitant]
     Active Substance: ALBUTEROL
     Route: 065
  467. ATENOLOL [Concomitant]
     Active Substance: ATENOLOL
     Indication: Hypertension
     Dosage: 50 MILLIGRAM, QD (1 EVERY 24 HOURS)
  468. ATENOLOL [Concomitant]
     Active Substance: ATENOLOL
     Dosage: 50 MILLIGRAM, QD (1 EVERY 24 HOURS)
  469. ATENOLOL [Concomitant]
     Active Substance: ATENOLOL
     Dosage: 50 MILLIGRAM, QD (1 EVERY 24 HOURS)
     Route: 048
  470. ATENOLOL [Concomitant]
     Active Substance: ATENOLOL
     Dosage: 50 MILLIGRAM, QD (1 EVERY 24 HOURS)
     Route: 048
  471. ATENOLOL [Concomitant]
     Active Substance: ATENOLOL
     Route: 048
  472. ATENOLOL [Concomitant]
     Active Substance: ATENOLOL
  473. ATENOLOL [Concomitant]
     Active Substance: ATENOLOL
  474. ATENOLOL [Concomitant]
     Active Substance: ATENOLOL
     Route: 048
  475. ATENOLOL [Concomitant]
     Active Substance: ATENOLOL
  476. ATENOLOL [Concomitant]
     Active Substance: ATENOLOL
  477. ATENOLOL [Concomitant]
     Active Substance: ATENOLOL
     Route: 065
  478. ATENOLOL [Concomitant]
     Active Substance: ATENOLOL
     Route: 065
  479. ATENOLOL [Concomitant]
     Active Substance: ATENOLOL
     Dosage: 50 MILLIGRAM, QD (1 EVERY 1 DAYS)
     Route: 048
  480. ATENOLOL [Concomitant]
     Active Substance: ATENOLOL
     Dosage: 50 MILLIGRAM, QD (1 EVERY 1 DAYS)
  481. ATENOLOL [Concomitant]
     Active Substance: ATENOLOL
     Dosage: 50 MILLIGRAM, QD (1 EVERY 1 DAYS)
  482. ATENOLOL [Concomitant]
     Active Substance: ATENOLOL
     Dosage: 50 MILLIGRAM, QD (1 EVERY 1 DAYS)
     Route: 048
  483. CLONIDINE [Concomitant]
     Active Substance: CLONIDINE
     Indication: Drug withdrawal syndrome
     Route: 065
  484. CLONIDINE [Concomitant]
     Active Substance: CLONIDINE
  485. CLONIDINE [Concomitant]
     Active Substance: CLONIDINE
  486. CLONIDINE [Concomitant]
     Active Substance: CLONIDINE
     Route: 065
  487. CLONIDINE [Concomitant]
     Active Substance: CLONIDINE
     Route: 065
  488. CLONIDINE [Concomitant]
     Active Substance: CLONIDINE
  489. CLONIDINE [Concomitant]
     Active Substance: CLONIDINE
  490. CLONIDINE [Concomitant]
     Active Substance: CLONIDINE
     Route: 065
  491. NAPROXEN [Concomitant]
     Active Substance: NAPROXEN
     Indication: Scoliosis
     Dosage: 500 MILLIGRAM, BID ( 2 EVERY 1 DAYS)
  492. NAPROXEN [Concomitant]
     Active Substance: NAPROXEN
     Indication: Pain
     Dosage: 500 MILLIGRAM, BID ( 2 EVERY 1 DAYS)
  493. NAPROXEN [Concomitant]
     Active Substance: NAPROXEN
     Dosage: 500 MILLIGRAM, BID ( 2 EVERY 1 DAYS)
     Route: 048
  494. NAPROXEN [Concomitant]
     Active Substance: NAPROXEN
     Dosage: 500 MILLIGRAM, BID ( 2 EVERY 1 DAYS)
     Route: 048
  495. NAPROXEN [Concomitant]
     Active Substance: NAPROXEN
  496. NAPROXEN [Concomitant]
     Active Substance: NAPROXEN
  497. NAPROXEN [Concomitant]
     Active Substance: NAPROXEN
     Route: 048
  498. NAPROXEN [Concomitant]
     Active Substance: NAPROXEN
     Route: 048
  499. NAPROXEN [Concomitant]
     Active Substance: NAPROXEN
     Dosage: 5 MICROGRAM, QD (1 EVERY 1 DAYS)
  500. NAPROXEN [Concomitant]
     Active Substance: NAPROXEN
     Dosage: 5 MICROGRAM, QD (1 EVERY 1 DAYS)
     Route: 048
  501. NAPROXEN [Concomitant]
     Active Substance: NAPROXEN
     Dosage: 5 MICROGRAM, QD (1 EVERY 1 DAYS)
  502. NAPROXEN [Concomitant]
     Active Substance: NAPROXEN
     Dosage: 5 MICROGRAM, QD (1 EVERY 1 DAYS)
     Route: 048

REACTIONS (7)
  - Depressed level of consciousness [Unknown]
  - Respiratory depression [Unknown]
  - Toxicity to various agents [Unknown]
  - Drug interaction [Unknown]
  - Mania [Recovering/Resolving]
  - Multiple drug therapy [Recovering/Resolving]
  - Off label use [Recovering/Resolving]
